FAERS Safety Report 13139590 (Version 1)
Quarter: 2017Q1

REPORT INFORMATION
  Report Type: Spontaneous
  Country: US (occurrence: US)
  Receive Date: 20170123
  Receipt Date: 20170123
  Transmission Date: 20170428
  Serious: Yes (Other)
  Sender: FDA-Public Use
  Company Number: US-REGENERON PHARMACEUTICALS, INC.-2016-18600

PATIENT

DRUGS (2)
  1. EYLEA [Suspect]
     Active Substance: AFLIBERCEPT
     Indication: NEOVASCULAR AGE-RELATED MACULAR DEGENERATION
     Dosage: 2 MG MILLIGRAM(S), LEFT EYE,EVERY 13 WEEKS
     Route: 031
  2. EYLEA [Suspect]
     Active Substance: AFLIBERCEPT
     Dosage: 2 MG MILLIGRAM(S), LEFT EYE,EVERY 13 WEEKS
     Route: 031
     Dates: start: 20160509, end: 20160509

REACTIONS (1)
  - Non-infectious endophthalmitis [Recovered/Resolved]

NARRATIVE: CASE EVENT DATE: 20160518
